FAERS Safety Report 5132259-X (Version None)
Quarter: 2006Q4

REPORT INFORMATION
  Report Type: 
  Country: None (occurrence: None)
  Receive Date: 20061017
  Receipt Date: 20061005
  Transmission Date: 20070319
  Serious: Yes (Other)
  Sender: FDA-Public Use
  Company Number: GXKR2006US06228

PATIENT
  Age: 70 Year
  Sex: Male

DRUGS (10)
  1. FUROSEMIDE [Suspect]
  2. INSULIN (INSULIN) [Concomitant]
  3. AMIODARONE HCL [Concomitant]
  4. DIGOXIN [Concomitant]
  5. LOSARTAN POTASSIUM [Concomitant]
  6. METOPROLOL TARTRATE [Concomitant]
  7. LANSOPRAZOLE [Concomitant]
  8. ZOLPIDEM TARTRATE [Concomitant]
  9. FERROUS SULFATE TAB [Concomitant]
  10. CEPHALEXIN [Concomitant]

REACTIONS (4)
  - CELLULITIS [None]
  - ERYTHEMA [None]
  - OEDEMA PERIPHERAL [None]
  - PEMPHIGOID [None]
